FAERS Safety Report 21677289 (Version 2)
Quarter: 2022Q4

REPORT INFORMATION
  Report Type: Spontaneous
  Country: FR (occurrence: FR)
  Receive Date: 20221203
  Receipt Date: 20221229
  Transmission Date: 20230112
  Serious: Yes (Hospitalization, Other)
  Sender: FDA-Public Use
  Company Number: FR-ABBVIE-4222413

PATIENT
  Age: 44 Year
  Sex: Female
  Weight: 102 kg

DRUGS (12)
  1. UPADACITINIB [Suspect]
     Active Substance: UPADACITINIB
     Indication: Rheumatoid arthritis
     Dosage: LAST ADMIN DATE: 2022
     Route: 048
     Dates: start: 202209, end: 2022
  2. ACETAMINOPHEN [Concomitant]
     Active Substance: ACETAMINOPHEN
     Indication: Product used for unknown indication
     Route: 065
  3. METHOTREXATE [Concomitant]
     Active Substance: METHOTREXATE
     Indication: Rheumatoid arthritis
     Route: 065
  4. POTASSIUM CHLORIDE [Concomitant]
     Active Substance: POTASSIUM CHLORIDE
     Indication: Product used for unknown indication
     Route: 065
  5. PROGESTERONE [Concomitant]
     Active Substance: PROGESTERONE
     Indication: Product used for unknown indication
     Dosage: 100 MILLIGRAM
     Route: 065
  6. Lamaline [Concomitant]
     Indication: Product used for unknown indication
     Route: 065
  7. MIRTAZAPINE [Concomitant]
     Active Substance: MIRTAZAPINE
     Indication: Product used for unknown indication
     Route: 065
     Dates: end: 202210
  8. AMLODIPINE BESYLATE [Concomitant]
     Active Substance: AMLODIPINE BESYLATE
     Indication: Product used for unknown indication
     Dosage: 10 MILLIGRAM
     Route: 065
  9. PREDNISONE [Concomitant]
     Active Substance: PREDNISONE
     Indication: Rheumatoid arthritis
     Dosage: 5 MILLIGRAM
     Route: 065
  10. FOLIC ACID [Concomitant]
     Active Substance: FOLIC ACID
     Indication: Product used for unknown indication
     Route: 065
  11. METHOTREXATE SODIUM [Concomitant]
     Active Substance: METHOTREXATE SODIUM
     Indication: Product used for unknown indication
     Route: 065
  12. ESTRADIOL [Concomitant]
     Active Substance: ESTRADIOL
     Indication: Product used for unknown indication
     Route: 065

REACTIONS (17)
  - Ischaemic stroke [Recovering/Resolving]
  - Acute polyneuropathy [Not Recovered/Not Resolved]
  - Spinal cord herniation [Unknown]
  - Limb reduction defect [Unknown]
  - Hyporeflexia [Unknown]
  - Arthralgia [Unknown]
  - Hypoaesthesia [Recovered/Resolved]
  - Gait disturbance [Unknown]
  - Constipation [Unknown]
  - Oedema peripheral [Unknown]
  - Fall [Unknown]
  - Hypoaesthesia [Unknown]
  - Sensorimotor disorder [Unknown]
  - Limb discomfort [Recovered/Resolved]
  - Gait disturbance [Recovered/Resolved]
  - Limb discomfort [Unknown]
  - Gait disturbance [Unknown]

NARRATIVE: CASE EVENT DATE: 20221101
